FAERS Safety Report 6120386-X (Version None)
Quarter: 2009Q1

REPORT INFORMATION
  Report Type: 
  Country: None (occurrence: None)
  Receive Date: 20090316
  Receipt Date: 20090316
  Transmission Date: 20090719
  Serious: Yes (Other)
  Sender: FDA-Public Use
  Company Number: None

PATIENT
  Age: 14 Year
  Sex: Male
  Weight: 73.7 kg

DRUGS (2)
  1. RECOMBINATE [Suspect]
     Indication: HAEMOPHILIA
     Dosage: 1569UNITS WEEKLY IV BOLUS
     Route: 040
  2. RECOMBINATE [Suspect]
     Dosage: 1200UNITS TWICE WEEKLY IV BOLUS
     Route: 040

REACTIONS (7)
  - ABDOMINAL PAIN [None]
  - COLD SWEAT [None]
  - EPISTAXIS [None]
  - INFUSION RELATED REACTION [None]
  - INFUSION SITE EXTRAVASATION [None]
  - INFUSION SITE PAIN [None]
  - NAUSEA [None]
